FAERS Safety Report 4402228-3 (Version None)
Quarter: 2004Q3

REPORT INFORMATION
  Report Type: 
  Country: None (occurrence: None)
  Receive Date: 20040720
  Receipt Date: 20040714
  Transmission Date: 20050211
  Serious: Yes (Other)
  Sender: FDA-Public Use
  Company Number: BR-ROCHE-374340

PATIENT
  Age: 20 Year
  Sex: Female

DRUGS (3)
  1. ROACUTAN [Suspect]
     Indication: ACNE
     Route: 048
     Dates: start: 20040509, end: 20040615
  2. ROACUTAN [Suspect]
     Route: 048
     Dates: end: 20030515
  3. MESIGYNA [Concomitant]
     Indication: CONTRACEPTION
     Dates: end: 20040115

REACTIONS (3)
  - DRUG EXPOSURE DURING PREGNANCY [None]
  - NO ADVERSE EFFECT [None]
  - PREGNANCY [None]
